FAERS Safety Report 24380622 (Version 2)
Quarter: 2024Q4

REPORT INFORMATION
  Report Type: Spontaneous
  Country: US (occurrence: US)
  Receive Date: 20240930
  Receipt Date: 20241013
  Transmission Date: 20250115
  Serious: Yes (Death, Hospitalization)
  Sender: ARDELYX
  Company Number: US-ARDELYX-2024ARDX007201

PATIENT
  Sex: Female
  Weight: 61.2 kg

DRUGS (12)
  1. XPHOZAH [Suspect]
     Active Substance: TENAPANOR HYDROCHLORIDE
     Indication: Hyperphosphataemia
     Dosage: 30 MILLIGRAM, BID
     Route: 048
     Dates: start: 20240807, end: 20240829
  2. BUMETANIDE [Concomitant]
     Active Substance: BUMETANIDE
     Indication: Product used for unknown indication
     Dosage: 2 MILLIGRAM
     Route: 065
     Dates: start: 20231003, end: 20240903
  3. CARVEDILOL [Concomitant]
     Active Substance: CARVEDILOL
     Indication: Product used for unknown indication
     Dosage: 12.5 MILLIGRAM
     Route: 065
     Dates: start: 20240625, end: 20240903
  4. CLOBETASOL [Concomitant]
     Active Substance: CLOBETASOL
     Indication: Product used for unknown indication
     Dosage: UNK (0.05 % SOL)
     Route: 065
     Dates: start: 20240609, end: 20240903
  5. ELIQUIS [Concomitant]
     Active Substance: APIXABAN
     Indication: Product used for unknown indication
     Dosage: 5 MILLIGRAM
     Route: 065
     Dates: start: 20240517, end: 20240617
  6. FLUOXETINE [Concomitant]
     Active Substance: FLUOXETINE HYDROCHLORIDE
     Indication: Product used for unknown indication
     Dosage: 20 MILLIGRAM
     Route: 065
     Dates: start: 20240703, end: 20240903
  7. TRAZODONE [Concomitant]
     Active Substance: TRAZODONE HYDROCHLORIDE
     Indication: Product used for unknown indication
     Dosage: 100 MILLIGRAM
     Route: 065
     Dates: start: 20240703, end: 20240903
  8. HYDROXYZINE [Concomitant]
     Active Substance: HYDROXYZINE HYDROCHLORIDE
     Indication: Product used for unknown indication
     Dosage: 25 MILLIGRAM
     Route: 065
     Dates: start: 20230406, end: 20230903
  9. INSULIN ASPART [Concomitant]
     Active Substance: INSULIN ASPART
     Indication: Product used for unknown indication
     Dosage: UNK
     Route: 065
     Dates: start: 20240223, end: 20240903
  10. OXYCODONE [Concomitant]
     Active Substance: OXYCODONE
     Indication: Product used for unknown indication
     Dosage: 10 MILLIGRAM
     Route: 065
     Dates: start: 20230423
  11. OXYCODONE [Concomitant]
     Active Substance: OXYCODONE
     Dosage: 30 MILLIGRAM
     Route: 065
     Dates: end: 20240903
  12. METHADONE HYDROCHLORIDE [Concomitant]
     Active Substance: METHADONE HYDROCHLORIDE
     Indication: Product used for unknown indication
     Dosage: 5 MILLIGRAM
     Route: 065
     Dates: start: 20240822, end: 20240903

REACTIONS (4)
  - Diabetes mellitus [Fatal]
  - Angiopathy [Fatal]
  - Leg amputation [Fatal]
  - Gangrene [Fatal]
